FAERS Safety Report 10069790 (Version 2)
Quarter: 2014Q2

REPORT INFORMATION
  Report Type: Spontaneous
  Country: US (occurrence: US)
  Receive Date: 20140410
  Receipt Date: 20140429
  Transmission Date: 20141212
  Serious: No
  Sender: FDA-Public Use
  Company Number: US-PFIZER INC-2014096774

PATIENT
  Age: 63 Year
  Sex: Female

DRUGS (2)
  1. GABAPENTIN [Suspect]
     Indication: HERPES ZOSTER
     Dosage: 200 MG, THREE TIMES A WEEK
  2. NEURONTIN [Suspect]
     Indication: HERPES ZOSTER
     Dosage: 400, 2X/DAY
     Route: 048

REACTIONS (5)
  - Pyrexia [Recovered/Resolved]
  - Paraesthesia [Unknown]
  - Peripheral coldness [Unknown]
  - Pallor [Unknown]
  - Drug withdrawal syndrome [Unknown]
